FAERS Safety Report 4577445-2 (Version None)
Quarter: 2005Q1

REPORT INFORMATION
  Report Type: 
  Country: None (occurrence: None)
  Receive Date: 20050208
  Receipt Date: 20050121
  Transmission Date: 20050727
  Serious: Yes (Other)
  Sender: FDA-Public Use
  Company Number: B0365809A

PATIENT
  Age: 37 Year
  Sex: Female

DRUGS (1)
  1. PAXIL [Suspect]
     Indication: DEPRESSION
     Dosage: SEE DOSAGE TEXT

REACTIONS (8)
  - ABNORMAL BEHAVIOUR [None]
  - ALCOHOL USE [None]
  - HIGH RISK SEXUAL BEHAVIOUR [None]
  - INSOMNIA [None]
  - JUDGEMENT IMPAIRED [None]
  - LIBIDO INCREASED [None]
  - PERSONALITY CHANGE [None]
  - SEXUAL ACTIVITY INCREASED [None]
